FAERS Safety Report 5637208-3 (Version None)
Quarter: 2008Q1

REPORT INFORMATION
  Report Type: 
  Country: None (occurrence: None)
  Receive Date: 20080225
  Receipt Date: 20080218
  Transmission Date: 20080703
  Serious: Yes (Death, Life-Threatening)
  Sender: FDA-Public Use
  Company Number: DE-AVENTIS-200810454DE

PATIENT
  Age: 66 Year
  Sex: Female

DRUGS (67)
  1. NOVALGIN                           /00039501/ [Suspect]
     Indication: PAIN
     Route: 048
     Dates: start: 20021230, end: 20030101
  2. NOVALGIN                           /00039501/ [Suspect]
     Route: 048
     Dates: start: 20030107, end: 20030109
  3. CLEXANE [Suspect]
     Dosage: DOSE: 2X80MG 1X40MG
     Route: 058
     Dates: start: 20021218, end: 20030109
  4. LANTUS [Suspect]
     Indication: DIABETES MELLITUS
     Dosage: DOSE: 12 IU 14 IU 8 IU
     Route: 058
     Dates: start: 20021219, end: 20030109
  5. INSUMAN RAPID [Suspect]
     Indication: DIABETES MELLITUS
     Dosage: DOSE: 4 IU 616 IU 6 IU 8 IU
     Route: 058
     Dates: start: 20021217, end: 20021217
  6. INSUMAN RAPID [Suspect]
     Dosage: DOSE: 4 IU 616 IU 6 IU 8 IU
     Route: 058
     Dates: start: 20021226, end: 20021228
  7. INSUMAN RAPID [Suspect]
     Dosage: DOSE: 4 IU 16 IU 6 IU 8 IU
     Route: 058
     Dates: start: 20021230, end: 20021230
  8. VOLTAREN [Suspect]
     Dosage: DOSE: 3X1 1X1 2X1
     Route: 048
     Dates: start: 20021214, end: 20021215
  9. VOLTAREN [Suspect]
     Dosage: DOSE: 3X1 1X1 2X1
     Route: 048
     Dates: start: 20021217, end: 20030109
  10. CIPROBAY                           /00697202/ [Suspect]
     Indication: SEPSIS
     Dosage: DOSE: 200MG 1-0-0 1-0-1
     Route: 042
     Dates: start: 20021216, end: 20021230
  11. LORZAAR PLUS [Suspect]
     Indication: HYPERTENSION
     Dosage: DOSE: 1-0-0
     Route: 048
     Dates: start: 20021021, end: 20021214
  12. LORZAAR PLUS [Suspect]
     Dosage: DOSE: 1-0-0
     Route: 048
     Dates: start: 20030102, end: 20030109
  13. NITROLINGUAL [Suspect]
     Indication: HYPERTENSIVE CRISIS
     Dosage: DOSE: 2 PUFFS
     Route: 048
     Dates: start: 20021214, end: 20021214
  14. NITROLINGUAL [Suspect]
     Dosage: DOSE: 2 PUFFS
     Route: 048
     Dates: start: 20021219, end: 20021219
  15. NITROLINGUAL [Suspect]
     Dosage: DOSE: 4 PUFFS
     Route: 048
     Dates: start: 20021230, end: 20021230
  16. BAYOTENSIN AKUT [Suspect]
     Indication: HYPERTENSIVE CRISIS
     Route: 048
     Dates: start: 20021219, end: 20021219
  17. BAYOTENSIN AKUT [Suspect]
     Route: 048
     Dates: start: 20021229, end: 20021230
  18. BAYOTENSIN AKUT [Suspect]
     Route: 048
     Dates: start: 20030102, end: 20030102
  19. NEXIUM [Suspect]
     Route: 048
     Dates: start: 20021219, end: 20030109
  20. CONTRAST MEDIA [Suspect]
     Dosage: DOSE: NOT REPORTED
     Dates: start: 20021230, end: 20021230
  21. SILOMAT                            /00096702/ [Suspect]
     Dosage: DOSE: 40 DROPS 20 DROPS
     Route: 048
     Dates: start: 20030101, end: 20030103
  22. ALT-INSULIN [Concomitant]
     Indication: DIABETES MELLITUS
     Route: 058
     Dates: start: 20021212, end: 20021212
  23. ALT-INSULIN [Concomitant]
     Route: 058
     Dates: start: 20021220, end: 20030101
  24. BELOC ZOK [Concomitant]
     Indication: HYPERTENSION
     Dosage: DOSE: 0-0-1 1-0-1
     Route: 048
     Dates: start: 20021023, end: 20021214
  25. BELOC ZOK [Concomitant]
     Dosage: DOSE: 0-0-1 1-0-1
     Route: 048
     Dates: start: 20021218, end: 20030109
  26. DECORTIN H [Concomitant]
     Dosage: DOSE: 10MG - 80MG
     Route: 048
     Dates: start: 20021021, end: 20021213
  27. DECORTIN H [Concomitant]
     Dosage: DOSE: 10MG - 80MG
     Route: 048
     Dates: start: 20021219, end: 20030109
  28. TIM-OPHTAL [Concomitant]
     Dosage: DOSE: NOT REPORTED; ROUTE: CONJUNCTIVAL, RETROBULBAR
     Route: 050
     Dates: start: 20021016, end: 20021214
  29. TIM-OPHTAL [Concomitant]
     Dosage: DOSE: NOT REPORTED; ROUTE: CONJUNCTIVAL, RETROBULBAR
     Route: 050
     Dates: start: 20021216, end: 20030109
  30. LACRIMAL [Concomitant]
     Dosage: ROUTE: CONJUNCTIVAL, RETROBULBAR
     Route: 050
     Dates: start: 20021016, end: 20021214
  31. LACRIMAL [Concomitant]
     Dosage: ROUTE: CONJUNCTIVAL, RETROBULBAR
     Route: 050
     Dates: start: 20021216, end: 20030109
  32. SOLUTIONS FOR PARENTERAL NUTRITION [Concomitant]
     Indication: PARENTERAL NUTRITION
     Route: 041
     Dates: start: 20021214, end: 20030101
  33. VITAMINS [Concomitant]
     Dosage: DOSE: 1 AMP.
     Route: 042
     Dates: start: 20021219, end: 20021230
  34. GENTAMICIN [Concomitant]
     Route: 042
     Dates: start: 20021220, end: 20021223
  35. SODIUM CHLORIDE [Concomitant]
     Route: 041
     Dates: start: 20021220, end: 20021223
  36. SODIUM CHLORIDE [Concomitant]
     Dosage: DOSE: 1-1-1 1-1-0
     Route: 048
     Dates: start: 20021220, end: 20030109
  37. SODIUM CHLORIDE [Concomitant]
     Route: 041
     Dates: start: 20021220, end: 20021223
  38. SODIUM CHLORIDE [Concomitant]
     Dosage: DOSE: 1-1-1 1-1-0
     Route: 048
     Dates: start: 20021220, end: 20030109
  39. BIFITERAL SIRUP [Concomitant]
     Indication: CONSTIPATION
     Dosage: DOSE: 30ML 15ML
     Route: 048
     Dates: start: 20021227, end: 20021227
  40. BIFITERAL SIRUP [Concomitant]
     Dosage: DOSE: 30ML 15ML
     Route: 048
     Dates: start: 20030104, end: 20030104
  41. HERBAL PREPARATION [Concomitant]
     Dosage: DOSE: 0-0-2
     Route: 048
     Dates: start: 20030102, end: 20030105
  42. DIAZEPAM [Concomitant]
     Indication: AGITATION
     Route: 054
     Dates: start: 20021212, end: 20021212
  43. AUGMENTIN '125' [Concomitant]
     Dosage: DOSE: 875/125  1-0-1
     Route: 048
     Dates: start: 20021210, end: 20021212
  44. NORVASC                            /00972401/ [Concomitant]
     Indication: HYPERTENSION
     Dosage: DOSE: 1-0-0 1-0-1
     Route: 048
     Dates: start: 20021001, end: 20021214
  45. PEPSINWEIN [Concomitant]
     Dosage: DOSE: 10 ML 20 ML
     Route: 048
     Dates: start: 20021210, end: 20021214
  46. ELECTROLYTE SOLUTIONS [Concomitant]
     Dosage: DOSE: 1L, 2L, 2L, 1L, 1L, 1L, 1L, 1L,
     Route: 042
     Dates: start: 20021129, end: 20021212
  47. ELECTROLYTE SOLUTIONS [Concomitant]
     Dosage: DOSE: 1L, 2L, 2L, 1L, 1L, 1L, 1L, 1L,
     Route: 041
     Dates: start: 20021214, end: 20021215
  48. TAMBOCOR [Concomitant]
     Indication: ATRIAL FIBRILLATION
     Dosage: DOSE: 90MG 45MG 80MG 40MG
     Route: 042
     Dates: start: 20021126, end: 20021212
  49. TAMBOCOR [Concomitant]
     Dosage: DOSE: 90MG 45MG 80MG 40MG
     Route: 042
     Dates: start: 20021218, end: 20021218
  50. PANTOZOL                           /01263202/ [Concomitant]
     Dosage: DOSE: 1-0-0 1-0-1 2-0-2
     Route: 048
     Dates: start: 20021016, end: 20021214
  51. PANTOZOL                           /01263202/ [Concomitant]
     Dosage: DOSE: 1-0-0 1-0-1 2-0-2
     Route: 048
     Dates: start: 20021217, end: 20021218
  52. HEPARIN [Concomitant]
     Dosage: DOSE: 2X 1X
     Route: 058
     Dates: start: 20021118, end: 20021217
  53. HEPARIN [Concomitant]
     Dosage: DOSE: 2X 1X
     Route: 058
     Dates: start: 20021229, end: 20021229
  54. TRAMAL [Concomitant]
     Indication: PAIN
     Route: 048
     Dates: start: 20021213, end: 20021213
  55. AUGMENTIN '125' [Concomitant]
     Route: 042
     Dates: start: 20021213, end: 20021216
  56. BENURON [Concomitant]
     Dosage: DOSE: 1-2-1
     Route: 054
     Dates: start: 20021214, end: 20021214
  57. ACETAMINOPHEN [Concomitant]
     Route: 054
     Dates: start: 20021214, end: 20021215
  58. ANTRA                              /00661201/ [Concomitant]
     Dosage: DOSE: 2 AMP.
     Route: 042
     Dates: start: 20021214, end: 20021219
  59. LIPOFUNDIN [Concomitant]
     Indication: PARENTERAL NUTRITION
     Route: 041
     Dates: start: 20021216, end: 20021216
  60. PERFALGAN [Concomitant]
     Route: 042
     Dates: start: 20021216, end: 20021216
  61. VITALIPIDE [Concomitant]
     Dosage: DOSE: 1 AMP.
     Route: 041
     Dates: start: 20021216, end: 20021217
  62. BELOC                              /00376902/ [Concomitant]
     Indication: TACHYCARDIA
     Route: 042
     Dates: start: 20021217, end: 20021217
  63. JONOSTERIL                         /01263001/ [Concomitant]
     Route: 041
     Dates: start: 20021218, end: 20021218
  64. PCM [Concomitant]
     Route: 048
     Dates: start: 20021219, end: 20021219
  65. INSULIN HUMAN [Concomitant]
     Indication: DIABETES MELLITUS
     Route: 042
     Dates: start: 20021219, end: 20021219
  66. LASIX [Concomitant]
     Route: 048
     Dates: start: 20021221, end: 20021221
  67. TAVEGIL                            /00137201/ [Concomitant]
     Dosage: DOSE: 1-0-1  1-1-1
     Route: 048
     Dates: start: 20030106, end: 20030109

REACTIONS (7)
  - BLISTER [None]
  - MOUTH ULCERATION [None]
  - NIKOLSKY'S SIGN [None]
  - PAIN OF SKIN [None]
  - PYREXIA [None]
  - RASH MACULAR [None]
  - TOXIC EPIDERMAL NECROLYSIS [None]
